FAERS Safety Report 5238991-1 (Version None)
Quarter: 2007Q1

REPORT INFORMATION
  Report Type: 
  Country: None (occurrence: None)
  Receive Date: 20070209
  Receipt Date: 20070201
  Transmission Date: 20070707
  Serious: Yes (Hospitalization)
  Sender: FDA-Public Use
  Company Number: 226292

PATIENT
  Age: 47 Year
  Sex: Male

DRUGS (3)
  1. AVASTIN [Suspect]
     Indication: LUNG NEOPLASM MALIGNANT
     Dosage: 5 MG/KG, Q2W, INTRAVENOUS
     Route: 042
     Dates: start: 20061127
  2. DOCETAXEL (DOCETAXEL) [Concomitant]
  3. CARBOPLATIN [Concomitant]

REACTIONS (4)
  - ASTHENIA [None]
  - LETHARGY [None]
  - PNEUMONIA [None]
  - SEPSIS [None]
